FAERS Safety Report 7179620-X (Version None)
Quarter: 2010Q4

REPORT INFORMATION
  Report Type: 
  Country: None (occurrence: None)
  Receive Date: 20101208
  Receipt Date: 20101126
  Transmission Date: 20110411
  Serious: Yes (Other)
  Sender: FDA-Public Use
  Company Number: JPI-P-013113

PATIENT
  Age: 65 Year
  Sex: Male

DRUGS (15)
  1. XYREM [Suspect]
     Indication: INSOMNIA
     Dosage: (9 GM (4.5 GM, 2 IN 1 D) ORAL) (9 GM (4.5 GM, 2 IN 1 D) ORAL)
     Route: 048
     Dates: start: 20060817
  2. XYREM [Suspect]
     Indication: INSOMNIA
     Dosage: (9 GM (4.5 GM, 2 IN 1 D) ORAL) (9 GM (4.5 GM, 2 IN 1 D) ORAL)
     Route: 048
     Dates: start: 20090817
  3. RISPERIDONE [Concomitant]
  4. MEMANTINE HYDROCHLORIDE [Concomitant]
  5. OXYCODONE AND ACETAMINOPHEN [Concomitant]
  6. FLUOXETINE HYDROCHLORIDE [Concomitant]
  7. AMLODIPINE BESYLATE [Concomitant]
  8. BISACODYL [Concomitant]
  9. CLOPIDOGREL BISULFATE [Concomitant]
  10. CILOSTAZOL [Concomitant]
  11. EZETIMIBE [Concomitant]
  12. OMEPRAZOLE [Concomitant]
  13. ATORVASTATIN CALCIUM [Concomitant]
  14. FENTANYL [Concomitant]
  15. NITROGLYCERIN [Concomitant]

REACTIONS (2)
  - DEVICE OCCLUSION [None]
  - INITIAL INSOMNIA [None]
